FAERS Safety Report 9706858 (Version 1)
Quarter: 2013Q4

REPORT INFORMATION
  Report Type: Spontaneous
  Country: US (occurrence: US)
  Receive Date: 20131125
  Receipt Date: 20131125
  Transmission Date: 20140711
  Serious: No
  Sender: FDA-Public Use
  Company Number: US-TEVA-444834USA

PATIENT
  Age: 33 Year
  Sex: Female
  Weight: 62.65 kg

DRUGS (3)
  1. QNASL [Suspect]
     Indication: SINUS POLYP
     Dates: start: 20131111, end: 20131112
  2. ZYRTEC [Concomitant]
     Indication: HYPERSENSITIVITY
  3. ZYRTEC [Concomitant]
     Indication: NASAL POLYPS

REACTIONS (2)
  - Headache [Unknown]
  - Feeling abnormal [Unknown]
